FAERS Safety Report 17635265 (Version 1)
Quarter: 2020Q2

REPORT INFORMATION
  Report Type: Spontaneous
  Country: ES (occurrence: ES)
  Receive Date: 20200406
  Receipt Date: 20200406
  Transmission Date: 20200713
  Serious: Yes (Other)
  Sender: FDA-Public Use
  Company Number: ES-FRESENIUS KABI-FK202003489

PATIENT
  Age: 86 Year
  Sex: Female

DRUGS (2)
  1. FUROSEMIDE (MANUFACTURER UNKNOWN) [Suspect]
     Active Substance: FUROSEMIDE
     Indication: PALLIATIVE CARE
     Route: 058
  2. SODIUM CHLORIDE. [Concomitant]
     Active Substance: SODIUM CHLORIDE
     Indication: MEDICATION DILUTION
     Route: 065

REACTIONS (7)
  - Discomfort [Unknown]
  - Peau d^orange [Unknown]
  - Humerus fracture [Unknown]
  - Asthenia [Unknown]
  - General physical health deterioration [Unknown]
  - Fall [Unknown]
  - Off label use [Unknown]
